FAERS Safety Report 16116770 (Version 1)
Quarter: 2019Q2

REPORT INFORMATION
  Report Type: Spontaneous
  Country: US (occurrence: US)
  Receive Date: 20190325
  Receipt Date: 20190325
  Transmission Date: 20190711
  Serious: Yes (Hospitalization, Other)
  Sender: FDA-Public Use
  Company Number: None

PATIENT
  Age: 90 Year
  Sex: Male
  Weight: 94.5 kg

DRUGS (6)
  1. PREDNISONE. [Concomitant]
     Active Substance: PREDNISONE
  2. PLAVIX [Concomitant]
     Active Substance: CLOPIDOGREL BISULFATE
  3. ASPIRIN. [Concomitant]
     Active Substance: ASPIRIN
  4. CENTRUM VITAMINS LIQUID [Concomitant]
     Active Substance: VITAMINS
  5. TRANSDERM SCOP [Suspect]
     Active Substance: SCOPOLAMINE
     Indication: VERTIGO
     Dosage: ?          QUANTITY:1 PATCH(ES);OTHER FREQUENCY:EVERY 3 DAYS;?
     Route: 062
     Dates: start: 20190227, end: 20190301
  6. PROPONIX [Concomitant]

REACTIONS (7)
  - Hallucination [None]
  - Restlessness [None]
  - Dysuria [None]
  - Dry mouth [None]
  - Agitation [None]
  - Disorientation [None]
  - Memory impairment [None]

NARRATIVE: CASE EVENT DATE: 20190301
